FAERS Safety Report 9170361 (Version 1)
Quarter: 2013Q1

REPORT INFORMATION
  Report Type: Spontaneous
  Country: IT (occurrence: None)
  Receive Date: 20130311
  Receipt Date: 20130311
  Transmission Date: 20140127
  Serious: Yes (Other)
  Sender: FDA-Public Use
  Company Number: 2012-23519

PATIENT
  Age: 37 Year
  Sex: Female

DRUGS (5)
  1. IRINOTECAN HYDROCHLORIDE [Suspect]
     Indication: RECTAL CANCER
     Dosage: 230 MG, CYCLIC, INTRAENOUS
     Dates: start: 20120720, end: 20121103
  2. FLUOROURACIL (FLUOROURACIL) [Suspect]
     Indication: RECTAL CANCER
     Dosage: 3500 MG/CYCLIC, INTRAVENOUS
     Dates: start: 20120720, end: 20121103
  3. ERBITUX (CETUXIMAB) [Concomitant]
     Indication: RECTAL CANCER
     Dosage: 850 MG/CYCLIC, INTRAVENOUS
     Dates: start: 20120720, end: 20121103
  4. EUTIROX (LEVOTHYOXINE SODIUM) [Concomitant]
  5. CALCIUM LEVOFOLINATE [Concomitant]

REACTIONS (2)
  - Diarrhoea [None]
  - Papule [None]
